FAERS Safety Report 7201475-5 (Version None)
Quarter: 2010Q4

REPORT INFORMATION
  Report Type: 
  Country: None (occurrence: None)
  Receive Date: 20101229
  Receipt Date: 20101221
  Transmission Date: 20110411
  Serious: Yes (Other)
  Sender: FDA-Public Use
  Company Number: CH-BRISTOL-MYERS SQUIBB COMPANY-15454424

PATIENT
  Age: 23 Year
  Sex: Female

DRUGS (7)
  1. VEPESID [Suspect]
     Indication: CARCINOMA IN SITU
     Route: 041
     Dates: start: 20011220
  2. ENDOXAN [Suspect]
     Indication: CARCINOMA IN SITU
     Route: 041
     Dates: start: 20011227
  3. COSMEGEN [Suspect]
     Indication: CARCINOMA IN SITU
     Route: 041
     Dates: start: 20011220
  4. METHOTREXATE [Suspect]
     Indication: CARCINOMA IN SITU
     Route: 041
     Dates: start: 20011220
  5. ONCOVIN [Suspect]
     Indication: CARCINOMA IN SITU
     Route: 041
     Dates: start: 20011227
  6. FOLVITE [Concomitant]
     Dosage: 4X5 MG,DAY3
     Route: 031
     Dates: start: 20011221
  7. NAVOBAN [Concomitant]
     Route: 041
     Dates: start: 20011220

REACTIONS (4)
  - ALANINE AMINOTRANSFERASE INCREASED [None]
  - ASPARTATE AMINOTRANSFERASE INCREASED [None]
  - BLOOD LACTATE DEHYDROGENASE INCREASED [None]
  - HEPATIC ENZYME INCREASED [None]
